FAERS Safety Report 16704131 (Version 1)
Quarter: 2019Q3

REPORT INFORMATION
  Report Type: Spontaneous
  Country: JP (occurrence: JP)
  Receive Date: 20190814
  Receipt Date: 20190814
  Transmission Date: 20191004
  Serious: Yes (Other)
  Sender: FDA-Public Use
  Company Number: JP-ASTRAZENECA-2019SF16001

PATIENT
  Age: 71 Year
  Sex: Female

DRUGS (2)
  1. MOSAPRIDE [Concomitant]
     Active Substance: MOSAPRIDE
     Dosage: DOSE UNKNOWN
     Route: 065
  2. NEXIUM [Suspect]
     Active Substance: ESOMEPRAZOLE MAGNESIUM
     Indication: HELICOBACTER INFECTION
     Route: 048

REACTIONS (3)
  - Gastric cancer [Recovering/Resolving]
  - Peritonitis [Recovering/Resolving]
  - Gastric perforation [Recovering/Resolving]
